FAERS Safety Report 12902561 (Version 1)
Quarter: 2016Q4

REPORT INFORMATION
  Report Type: Spontaneous
  Country: MX (occurrence: MX)
  Receive Date: 20161102
  Receipt Date: 20161102
  Transmission Date: 20170207
  Serious: Yes (Life-Threatening, Other)
  Sender: FDA-Public Use
  Company Number: MX-TEVA-708287ISR

PATIENT
  Sex: Male

DRUGS (1)
  1. SINERGIX (TRAMADOL) [Suspect]
     Active Substance: TRAMADOL
     Indication: PAIN
     Dates: start: 2009

REACTIONS (2)
  - Cardio-respiratory arrest [Recovered/Resolved]
  - Seizure [Recovered/Resolved]

NARRATIVE: CASE EVENT DATE: 2009
